FAERS Safety Report 12990386 (Version 1)
Quarter: 2016Q4

REPORT INFORMATION
  Report Type: Report from Study
  Country: IT (occurrence: IT)
  Receive Date: 20161201
  Receipt Date: 20161201
  Transmission Date: 20170207
  Serious: Yes (Hospitalization)
  Sender: FDA-Public Use
  Company Number: IT-MYLANLABS-2016M1051898

PATIENT

DRUGS (8)
  1. FLUOXETINE [Suspect]
     Active Substance: FLUOXETINE HYDROCHLORIDE
     Indication: EATING DISORDER
  2. VALIUM [Suspect]
     Active Substance: DIAZEPAM
     Indication: PERSONALITY DISORDER
     Dosage: 10 ML TOTAL
     Route: 048
     Dates: start: 20150608, end: 20150608
  3. VALIUM [Suspect]
     Active Substance: DIAZEPAM
     Indication: EATING DISORDER
  4. PARACETAMOL [Suspect]
     Active Substance: ACETAMINOPHEN
     Indication: EATING DISORDER
  5. FLUOXETINE [Suspect]
     Active Substance: FLUOXETINE HYDROCHLORIDE
     Indication: PERSONALITY DISORDER
     Dosage: 20 DF TOTAL
     Route: 048
     Dates: start: 20150608, end: 20150608
  6. PARACETAMOL [Suspect]
     Active Substance: ACETAMINOPHEN
     Indication: PERSONALITY DISORDER
     Dosage: 2 G TOTAL
     Route: 048
     Dates: start: 20150608, end: 20150608
  7. FLUNOX [Suspect]
     Active Substance: FLURAZEPAM HYDROCHLORIDE
     Indication: PERSONALITY DISORDER
     Dosage: 5 DF TOTAL
     Route: 048
     Dates: start: 20150608, end: 20150608
  8. FLUNOX [Suspect]
     Active Substance: FLURAZEPAM HYDROCHLORIDE
     Indication: EATING DISORDER

REACTIONS (3)
  - Drug abuse [Recovering/Resolving]
  - Poverty of speech [Recovering/Resolving]
  - Somnolence [Recovering/Resolving]

NARRATIVE: CASE EVENT DATE: 20150608
